FAERS Safety Report 13167609 (Version 3)
Quarter: 2017Q1

REPORT INFORMATION
  Report Type: Report from Study
  Country: US (occurrence: US)
  Receive Date: 20170131
  Receipt Date: 20170328
  Transmission Date: 20170428
  Serious: Yes (Other)
  Sender: FDA-Public Use
  Company Number: US-BIOGEN-2017BI00350281

PATIENT
  Sex: Male

DRUGS (1)
  1. PLEGRIDY [Suspect]
     Active Substance: PEGINTERFERON BETA-1A
     Indication: MULTIPLE SCLEROSIS
     Route: 065
     Dates: start: 20161003, end: 20161114

REACTIONS (5)
  - Musculoskeletal stiffness [Unknown]
  - Urinary tract infection [Recovered/Resolved]
  - Speech disorder [Unknown]
  - Septic shock [Recovered/Resolved]
  - Urinary incontinence [Recovered/Resolved]
